FAERS Safety Report 8454610-5 (Version None)
Quarter: 2012Q2

REPORT INFORMATION
  Report Type: 
  Country: None (occurrence: None)
  Receive Date: 20120621
  Receipt Date: 20120612
  Transmission Date: 20120825
  Serious: No
  Sender: FDA-Public Use
  Company Number: US-BIOGENIDEC-2012BI020878

PATIENT
  Sex: Female

DRUGS (2)
  1. AVONEX [Suspect]
     Indication: MULTIPLE SCLEROSIS
     Route: 030
     Dates: start: 20120330
  2. IBUPROFEN [Concomitant]

REACTIONS (5)
  - MUSCULOSKELETAL STIFFNESS [None]
  - MUSCLE TIGHTNESS [None]
  - ASTHENIA [None]
  - BACK PAIN [None]
  - FEELING ABNORMAL [None]
